FAERS Safety Report 17877476 (Version 1)
Quarter: 2020Q2

REPORT INFORMATION
  Report Type: Spontaneous
  Country: US (occurrence: US)
  Receive Date: 20200609
  Receipt Date: 20200609
  Transmission Date: 20200714
  Serious: Yes (Hospitalization)
  Sender: FDA-Public Use
  Company Number: US-AMNEAL PHARMACEUTICALS-2020-AMRX-01554

PATIENT
  Age: 35 Year
  Sex: Female

DRUGS (6)
  1. NAPROXEN. [Concomitant]
     Active Substance: NAPROXEN
     Indication: ENDOMETRIOSIS
     Dosage: UNK
     Route: 065
     Dates: start: 20180301
  2. VICODIN [Concomitant]
     Active Substance: ACETAMINOPHEN\HYDROCODONE BITARTRATE
     Indication: ENDOMETRIOSIS
     Dosage: UNK
     Route: 065
     Dates: start: 20180320
  3. ACTIVELLA [Suspect]
     Active Substance: ESTRADIOL\NORETHINDRONE ACETATE
     Indication: ENDOMETRIOSIS
     Dosage: 1 DOSAGE FORM, QD
     Route: 048
     Dates: start: 20180509
  4. ELAGOLIX [Suspect]
     Active Substance: ELAGOLIX
     Indication: ENDOMETRIOSIS
     Dosage: 2 DOSAGE FORM, DAILY (200 MILLIGRAM, 2  IN 1 DAY)
     Route: 048
     Dates: start: 20180509
  5. IMITREX [Concomitant]
     Active Substance: SUMATRIPTAN SUCCINATE
     Indication: MIGRAINE
     Dosage: 100 MG, AS REQUIRED
     Route: 048
     Dates: start: 20170201
  6. CALDECIUM [CALCIUM LACTATE;CALCIUM PHOSPHATE;COLECALCIFEROL] [Concomitant]
     Indication: SUPPLEMENTATION THERAPY
     Dosage: 1 DOSAGE FORM, QD
     Route: 048
     Dates: start: 20180309

REACTIONS (1)
  - Sinus node dysfunction [Recovered/Resolved]

NARRATIVE: CASE EVENT DATE: 20181127
